FAERS Safety Report 5143605-5 (Version None)
Quarter: 2006Q4

REPORT INFORMATION
  Report Type: 
  Country: None (occurrence: None)
  Receive Date: 20061030
  Receipt Date: 20061016
  Transmission Date: 20070319
  Serious: Yes (Other)
  Sender: FDA-Public Use
  Company Number: 2006126820

PATIENT
  Age: 82 Year
  Sex: Male
  Weight: 70.3075 kg

DRUGS (3)
  1. ZYVOX [Suspect]
     Indication: INFECTION
     Dosage: SEE IMAGE
  2. ALL OTHER THERAPEUTIC PRODUCTS [Concomitant]
  3. ALPRAZOLAM [Concomitant]

REACTIONS (8)
  - ASTHENIA [None]
  - FEELING ABNORMAL [None]
  - FUNGAL RASH [None]
  - HYPOAESTHESIA [None]
  - NAUSEA [None]
  - ORAL INTAKE REDUCED [None]
  - ORAL MUCOSAL DISORDER [None]
  - WOUND [None]
